FAERS Safety Report 9137955 (Version 1)
Quarter: 2013Q1

REPORT INFORMATION
  Report Type: Report from Study
  Country: US (occurrence: US)
  Receive Date: 20130304
  Receipt Date: 20130304
  Transmission Date: 20140127
  Serious: No
  Sender: FDA-Public Use
  Company Number: US-ABBOTT-12P-163-0939550-00

PATIENT
  Sex: Male
  Weight: 131.66 kg

DRUGS (5)
  1. ANDROGEL 1% [Suspect]
     Indication: BLOOD TESTOSTERONE DECREASED
     Dates: end: 201205
  2. ANDROGEL 1.62% [Suspect]
     Indication: BLOOD TESTOSTERONE DECREASED
     Dosage: 2 PUMPS PER DAY
     Dates: start: 201205
  3. UNKNOWN MEDICATIONS [Concomitant]
     Indication: BLOOD PRESSURE
  4. UNKNOWN MEDICATIONS [Concomitant]
     Indication: BIPOLAR DISORDER
  5. UNKNOWN MEDICATION [Concomitant]
     Indication: THYROID DISORDER

REACTIONS (4)
  - Nipple disorder [Not Recovered/Not Resolved]
  - Breast tenderness [Not Recovered/Not Resolved]
  - Pain [Not Recovered/Not Resolved]
  - Arthritis [Unknown]
